FAERS Safety Report 8105838-5 (Version None)
Quarter: 2012Q1

REPORT INFORMATION
  Report Type: 
  Country: None (occurrence: None)
  Receive Date: 20120202
  Receipt Date: 20120125
  Transmission Date: 20120608
  Serious: Yes (Hospitalization, Other)
  Sender: FDA-Public Use
  Company Number: DE-BRISTOL-MYERS SQUIBB COMPANY-16282014

PATIENT
  Age: 76 Year
  Sex: Female

DRUGS (4)
  1. ESTREVA [Concomitant]
  2. IRBESARTAN [Suspect]
     Indication: HYPERTENSION
     Route: 048
     Dates: start: 20090726, end: 20111204
  3. HYDROCHLOROTHIAZIDE [Concomitant]
  4. IRBESARTAN [Concomitant]

REACTIONS (1)
  - LEUKOCYTOCLASTIC VASCULITIS [None]
